FAERS Safety Report 9719695 (Version 2)
Quarter: 2014Q1

REPORT INFORMATION
  Report Type: Spontaneous
  Country: NL (occurrence: NL)
  Receive Date: 20131128
  Receipt Date: 20140305
  Transmission Date: 20141002
  Serious: Yes (Hospitalization)
  Sender: FDA-Public Use
  Company Number: NL-ASTRAZENECA-2013SE85661

PATIENT
  Age: 18391 Day
  Sex: Female
  Weight: 81 kg

DRUGS (6)
  1. CRESTOR [Suspect]
     Indication: PROPHYLAXIS
     Route: 048
     Dates: start: 20131010, end: 20131119
  2. TICAGRELOR [Concomitant]
     Indication: PROPHYLAXIS
     Route: 048
     Dates: start: 20130702
  3. ASCAL [Concomitant]
     Route: 048
     Dates: start: 20130702
  4. BISOPROLOL [Concomitant]
     Route: 048
     Dates: start: 20130702
  5. AMLODIPINE [Concomitant]
     Route: 048
     Dates: start: 20130702
  6. LOSARTAN [Concomitant]
     Route: 048
     Dates: start: 2013

REACTIONS (5)
  - Renal impairment [Unknown]
  - Renal failure [Recovered/Resolved]
  - Rhabdomyolysis [Recovered/Resolved]
  - Hepatic function abnormal [Recovered/Resolved]
  - Hypothyroidism [Unknown]
